FAERS Safety Report 11311737 (Version 2)
Quarter: 2015Q4

REPORT INFORMATION
  Report Type: Spontaneous
  Country: US (occurrence: None)
  Receive Date: 20150723
  Receipt Date: 20151002
  Transmission Date: 20160304
  Serious: Yes (Death, Hospitalization, Other)
  Sender: FDA-Public Use
  Company Number: ADR-2015-01373

PATIENT
  Age: 28 Year
  Sex: Male

DRUGS (1)
  1. LIORESAL [Suspect]
     Active Substance: BACLOFEN
     Indication: MUSCLE SPASTICITY
     Dosage: 100 MCG/ML

REACTIONS (7)
  - Bacterial test positive [None]
  - Unresponsive to stimuli [None]
  - Respiratory arrest [None]
  - Cardiac arrest [None]
  - Bacterial infection [None]
  - Medical device site discharge [None]
  - Brain death [None]
